FAERS Safety Report 4422877-6 (Version None)
Quarter: 2004Q3

REPORT INFORMATION
  Report Type: 
  Country: None (occurrence: None)
  Receive Date: 20040811
  Receipt Date: 20040730
  Transmission Date: 20050211
  Serious: Yes (Hospitalization)
  Sender: FDA-Public Use
  Company Number: SG-JNJFOC-20040800652

PATIENT
  Sex: Male
  Weight: 58 kg

DRUGS (3)
  1. REMICADE [Suspect]
  2. REMICADE [Suspect]
     Indication: SCIATICA
  3. METHOTREXATE [Concomitant]

REACTIONS (3)
  - COUGH [None]
  - PULMONARY TUBERCULOSIS [None]
  - PYREXIA [None]
